FAERS Safety Report 10853534 (Version 1)
Quarter: 2015Q1

REPORT INFORMATION
  Report Type: Spontaneous
  Country: US (occurrence: US)
  Receive Date: 20150222
  Receipt Date: 20150222
  Transmission Date: 20150721
  Serious: No
  Sender: FDA-Public Use
  Company Number: US-ALLERGAN-1424344US

PATIENT
  Age: 29 Year
  Sex: Female

DRUGS (1)
  1. BOTOX COSMETIC [Suspect]
     Active Substance: ONABOTULINUMTOXINA
     Indication: SKIN WRINKLING
     Dosage: 26 UNITS, SINGLE
     Route: 030
     Dates: start: 20141023, end: 20141023

REACTIONS (5)
  - Paraesthesia [Recovering/Resolving]
  - VIIth nerve paralysis [Recovering/Resolving]
  - Off label use [Unknown]
  - Eyelid ptosis [Recovering/Resolving]
  - Facial paresis [Recovering/Resolving]
